FAERS Safety Report 18562851 (Version 1)
Quarter: 2020Q4

REPORT INFORMATION
  Report Type: Spontaneous
  Country: US (occurrence: US)
  Receive Date: 20201130
  Receipt Date: 20201130
  Transmission Date: 20210114
  Serious: No
  Sender: FDA-Public Use
  Company Number: US-ROCHE-2633567

PATIENT
  Sex: Female
  Weight: 65.83 kg

DRUGS (3)
  1. LUCENTIS [Suspect]
     Active Substance: RANIBIZUMAB
     Indication: NEOVASCULAR AGE-RELATED MACULAR DEGENERATION
     Route: 050
     Dates: start: 20200512
  2. AVASTIN [Suspect]
     Active Substance: BEVACIZUMAB
     Indication: NEOVASCULAR AGE-RELATED MACULAR DEGENERATION
     Route: 050
     Dates: start: 20200217, end: 20200414
  3. COREG [Concomitant]
     Active Substance: CARVEDILOL
     Indication: HYPERTENSION
     Route: 048

REACTIONS (6)
  - Off label use [Unknown]
  - Hypertension [Recovered/Resolved]
  - Sensory disturbance [Recovered/Resolved]
  - Weight increased [Not Recovered/Not Resolved]
  - Rash erythematous [Unknown]
  - Intentional product use issue [Unknown]
